FAERS Safety Report 15066004 (Version 1)
Quarter: 2018Q3

REPORT INFORMATION
  Report Type: Spontaneous
  Country: US (occurrence: US)
  Receive Date: 20180626
  Receipt Date: 20180626
  Transmission Date: 20181010
  Serious: Yes (Other)
  Sender: FDA-Public Use
  Company Number: US-ASTRAZENECA-2018SE80415

PATIENT
  Age: 25849 Day
  Sex: Female

DRUGS (1)
  1. LYNPARZA [Suspect]
     Active Substance: OLAPARIB
     Indication: OVARIAN CANCER
     Route: 048
     Dates: start: 20180303, end: 20180607

REACTIONS (4)
  - Carbohydrate antigen 125 increased [Unknown]
  - Pain [Unknown]
  - Metastasis [Unknown]
  - Nausea [Unknown]

NARRATIVE: CASE EVENT DATE: 20180607
